FAERS Safety Report 5869957-6 (Version None)
Quarter: 2008Q3

REPORT INFORMATION
  Report Type: 
  Country: None (occurrence: None)
  Receive Date: 20080904
  Receipt Date: 20080829
  Transmission Date: 20090109
  Serious: Yes (Hospitalization, Other)
  Sender: FDA-Public Use
  Company Number: PHEH2008US07777

PATIENT
  Age: 52 Year
  Sex: Female

DRUGS (14)
  1. TASIGNA [Suspect]
     Indication: CHRONIC MYELOID LEUKAEMIA
     Dosage: 400 MG, BID
     Route: 048
     Dates: start: 20080720
  2. TASIGNA [Suspect]
     Dosage: UNK
     Dates: start: 20080819
  3. NOVOLOG MIX 70/30 [Concomitant]
  4. BENAZEPRIL HYDROCHLORIDE [Concomitant]
  5. FUROSEMIDE [Concomitant]
  6. PAROXETINE HCL [Concomitant]
  7. PROMETRIUM [Concomitant]
  8. LEVOTHYROXINE SODIUM [Concomitant]
  9. GABAPENTIN [Concomitant]
  10. CLONAZEPAM [Concomitant]
  11. HYDROCODONE BITARTRATE [Concomitant]
  12. CIPROFLOXACIN [Concomitant]
  13. FISH OIL [Concomitant]
  14. ASPIRIN [Concomitant]

REACTIONS (9)
  - BLOOD GLUCOSE INCREASED [None]
  - CARDIAC FAILURE CONGESTIVE [None]
  - CHEST PAIN [None]
  - DIABETES MELLITUS [None]
  - DYSPNOEA [None]
  - PNEUMONIA [None]
  - PRURITUS GENERALISED [None]
  - PULMONARY HYPERTENSION [None]
  - PYREXIA [None]
